FAERS Safety Report 9975550 (Version 3)
Quarter: 2014Q1

REPORT INFORMATION
  Report Type: Spontaneous
  Country: GB (occurrence: GB)
  Receive Date: 20140306
  Receipt Date: 20140326
  Transmission Date: 20141002
  Serious: Yes (Hospitalization)
  Sender: FDA-Public Use
  Company Number: PHFR2014GB001711

PATIENT
  Age: 49 Year
  Sex: Female

DRUGS (6)
  1. CLOZARIL [Suspect]
     Dosage: UNK
     Route: 048
     Dates: start: 20051011
  2. CLOZARIL [Suspect]
     Dosage: 550 MG, UNK
     Route: 048
  3. DULOXETINE [Concomitant]
     Dosage: 30 MG, DAILY
  4. DULOXETINE [Concomitant]
     Dosage: 60 MG, DAILY
  5. SODIUM VALPROATE [Concomitant]
     Dosage: UNK
  6. SODIUM VALPROATE [Concomitant]
     Dosage: UNK

REACTIONS (9)
  - Pain in extremity [Unknown]
  - Back pain [Unknown]
  - Mobility decreased [Unknown]
  - Oedema [Recovered/Resolved]
  - Incontinence [Recovered/Resolved]
  - Antipsychotic drug level increased [Unknown]
  - White blood cell count increased [Not Recovered/Not Resolved]
  - Neutrophil count increased [Not Recovered/Not Resolved]
  - Platelet count increased [Not Recovered/Not Resolved]
